FAERS Safety Report 20768674 (Version 1)
Quarter: 2022Q2

REPORT INFORMATION
  Report Type: Other
  Country: RU (occurrence: None)
  Receive Date: 20220429
  Receipt Date: 20220429
  Transmission Date: 20220720
  Serious: Yes (Death)
  Sender: FDA-Public Use
  Company Number: RU-ROCHE-3084107

PATIENT
  Age: 67 Year
  Sex: Male

DRUGS (2)
  1. ATEZOLIZUMAB [Suspect]
     Active Substance: ATEZOLIZUMAB
     Indication: Lung adenocarcinoma
     Route: 042
  2. UNSPECIFIED INGREDIENT [Concomitant]
     Active Substance: UNSPECIFIED INGREDIENT
     Indication: Thrombosis prophylaxis

REACTIONS (5)
  - Cardiac arrest [Fatal]
  - Myocarditis [Fatal]
  - Tumour embolism [Fatal]
  - Adenocarcinoma metastatic [Fatal]
  - Drug ineffective [Unknown]
